FAERS Safety Report 11976726 (Version 1)
Quarter: 2016Q1

REPORT INFORMATION
  Report Type: Spontaneous
  Country: US (occurrence: US)
  Receive Date: 20160129
  Receipt Date: 20160129
  Transmission Date: 20160526
  Serious: Yes (Other)
  Sender: FDA-Public Use
  Company Number: US-CIPLA LTD.-2016US00834

PATIENT

DRUGS (2)
  1. FLOXURIDINE. [Suspect]
     Active Substance: FLOXURIDINE
     Indication: COLORECTAL CANCER
     Dosage: 1.5 CYCLES, AFTER 24 WEEKS 6 CYCLES
  2. IRINOTECAN [Suspect]
     Active Substance: IRINOTECAN
     Indication: COLORECTAL CANCER
     Dosage: 1.5 CYCLES, AFTER 24 WEEKS 6 CYCLES
     Route: 042

REACTIONS (2)
  - Steatohepatitis [Unknown]
  - Hepatic steatosis [Unknown]
